FAERS Safety Report 20949199 (Version 1)
Quarter: 2022Q2

REPORT INFORMATION
  Report Type: Spontaneous
  Country: US (occurrence: US)
  Receive Date: 20220613
  Receipt Date: 20220613
  Transmission Date: 20220720
  Serious: Yes (Hospitalization, Other)
  Sender: FDA-Public Use
  Company Number: US-APOTEX-2022AP008837

PATIENT
  Age: 85 Year
  Sex: Male

DRUGS (6)
  1. DECITABINE [Suspect]
     Active Substance: DECITABINE
     Indication: Acute myeloid leukaemia
     Dosage: 20 MILLIGRAM/SQ. METER (CYCLE 1 TO 3)
     Route: 065
  2. DECITABINE [Suspect]
     Active Substance: DECITABINE
     Dosage: 20 MILLIGRAM/SQ. METER (CYCLE 4)
     Route: 065
  3. DECITABINE [Suspect]
     Active Substance: DECITABINE
     Dosage: 20 MILLIGRAM/SQ. METER (CYCLE 5)
     Route: 065
  4. VENETOCLAX [Suspect]
     Active Substance: VENETOCLAX
     Indication: Acute myeloid leukaemia
     Dosage: 100 MILLIGRAM, QD (CYCLE 1 TO 3)
     Route: 065
  5. VENETOCLAX [Suspect]
     Active Substance: VENETOCLAX
     Dosage: 100 MILLIGRAM, QD (CYCLE 5)
     Route: 065
  6. POSACONAZOLE [Concomitant]
     Active Substance: POSACONAZOLE
     Indication: Antifungal prophylaxis
     Dosage: UNK
     Route: 065

REACTIONS (4)
  - Tumour lysis syndrome [Unknown]
  - Gastrointestinal haemorrhage [Unknown]
  - Bacteraemia [Unknown]
  - Therapeutic product effect incomplete [Unknown]
